FAERS Safety Report 5570102-5 (Version None)
Quarter: 2007Q4

REPORT INFORMATION
  Report Type: 
  Country: None (occurrence: None)
  Receive Date: 20071218
  Receipt Date: 20071130
  Transmission Date: 20080405
  Serious: Yes (Other)
  Sender: FDA-Public Use
  Company Number: S07-ESP-06274-01

PATIENT
  Age: 60 Year
  Sex: Male

DRUGS (7)
  1. ESCITALOPRAM [Suspect]
     Indication: DEPRESSION
     Dosage: 10 MG QD PO
     Route: 048
     Dates: start: 20070101, end: 20071008
  2. IDALPREM (LORAZEPAM) [Concomitant]
  3. DILTIAZEM [Concomitant]
  4. EDEMOX (ACETAZOLAMIDE) [Concomitant]
  5. HALOPERIDOL [Concomitant]
  6. VITAMIN B-12 [Concomitant]
  7. FOLIC ACID [Concomitant]

REACTIONS (3)
  - LUNG INFILTRATION [None]
  - PYREXIA [None]
  - RASH [None]
